FAERS Safety Report 8434893-8 (Version None)
Quarter: 2012Q2

REPORT INFORMATION
  Report Type: 
  Country: None (occurrence: None)
  Receive Date: 20120608
  Receipt Date: 20120530
  Transmission Date: 20120825
  Serious: Yes (Death)
  Sender: FDA-Public Use
  Company Number: FK201201514

PATIENT
  Age: 53 Year
  Sex: Female

DRUGS (9)
  1. PROPRANOLOL [Suspect]
     Indication: PRODUCT USED FOR UNKNOWN INDICATION
  2. MIDAZOLAM [Suspect]
     Indication: PRODUCT USED FOR UNKNOWN INDICATION
  3. PROGESTERONE [Concomitant]
  4. NIMBEX [Suspect]
  5. LEVOTHYROXINE SODIUM [Concomitant]
  6. ESTRAVA ( ESTRADIOL VALERATE) [Concomitant]
  7. PROPOFOL [Suspect]
     Indication: INDUCTION OF ANAESTHESIA
     Dosage: INTRAVENOUS (NOT OTHERWISE SPECIFIED)
     Route: 042
     Dates: start: 20120507, end: 20120507
  8. SUXAMETHONIUM AGUETTANT(SUXAMETHONIUM) [Suspect]
     Indication: PRODUCT USED FOR UNKNOWN INDICATION
  9. KETAMINE HCL [Suspect]
     Indication: PRODUCT USED FOR UNKNOWN INDICATION

REACTIONS (5)
  - DRUG INEFFECTIVE [None]
  - OXYGEN SATURATION DECREASED [None]
  - VENTRICULAR FIBRILLATION [None]
  - HEART RATE DECREASED [None]
  - ERYTHEMA [None]
